FAERS Safety Report 17058223 (Version 2)
Quarter: 2019Q4

REPORT INFORMATION
  Report Type: Spontaneous
  Country: PT (occurrence: PT)
  Receive Date: 20191121
  Receipt Date: 20191127
  Transmission Date: 20200122
  Serious: Yes (Hospitalization, Other)
  Sender: FDA-Public Use
  Company Number: PT-009507513-1911PRT004213

PATIENT
  Age: 80 Year
  Sex: Female

DRUGS (5)
  1. PANTOPRAZOLE [Suspect]
     Active Substance: PANTOPRAZOLE
  2. LISINOPRIL. [Suspect]
     Active Substance: LISINOPRIL
  3. ASPIRIN. [Suspect]
     Active Substance: ASPIRIN
  4. SIMVASTATIN. [Suspect]
     Active Substance: SIMVASTATIN
  5. HYDROCHLOROTHIAZIDE. [Suspect]
     Active Substance: HYDROCHLOROTHIAZIDE

REACTIONS (1)
  - Non-Hodgkin^s lymphoma [Recovering/Resolving]
